FAERS Safety Report 6687213-3 (Version None)
Quarter: 2010Q2

REPORT INFORMATION
  Report Type: 
  Country: None (occurrence: None)
  Receive Date: 20100416
  Receipt Date: 20100416
  Transmission Date: 20101027
  Serious: Yes (Death, Hospitalization)
  Sender: FDA-Public Use
  Company Number: None

PATIENT
  Sex: Male
  Weight: 65.8 kg

DRUGS (3)
  1. CYTARABINE [Suspect]
     Dosage: 28480 MG
     Dates: end: 20100403
  2. ETOPOSIDE [Suspect]
     Dosage: 2716 MG
     Dates: end: 20100403
  3. RITUXIMAB (MOAB C2B8 ANTI CD20, CHIMERIC) [Suspect]
     Dosage: 1330 MG
     Dates: end: 20100413

REACTIONS (11)
  - BACTERIAL INFECTION [None]
  - BLOOD CULTURE POSITIVE [None]
  - CARDIAC ARREST [None]
  - CEREBRAL VENTRICLE DILATATION [None]
  - CLOSTRIDIUM DIFFICILE COLITIS [None]
  - COMPLEX PARTIAL SEIZURES [None]
  - COORDINATION ABNORMAL [None]
  - DYSARTHRIA [None]
  - ELECTROMECHANICAL DISSOCIATION [None]
  - MALAISE [None]
  - MUCOSAL INFLAMMATION [None]
